FAERS Safety Report 10846502 (Version 2)
Quarter: 2015Q2

REPORT INFORMATION
  Report Type: Spontaneous
  Country: US (occurrence: US)
  Receive Date: 20150220
  Receipt Date: 20150413
  Transmission Date: 20150821
  Serious: Yes (Death, Hospitalization)
  Sender: FDA-Public Use
  Company Number: US-ELI_LILLY_AND_COMPANY-US201502004902

PATIENT
  Age: 66 Year
  Sex: Male
  Weight: 79.37 kg

DRUGS (10)
  1. CYRAMZA [Suspect]
     Active Substance: RAMUCIRUMAB
     Indication: GASTRIC CANCER STAGE IV
     Dosage: 8 MG/KG, DAY 1 AND 15
     Route: 042
     Dates: start: 20150109
  2. FENTANYL. [Concomitant]
     Active Substance: FENTANYL
  3. ZOFRAN                             /00955301/ [Concomitant]
     Active Substance: ONDANSETRON HYDROCHLORIDE
  4. SIMETHICONE [Concomitant]
     Active Substance: DIMETHICONE\SILICON DIOXIDE\SIMETHICONE
  5. PRILOSEC [Concomitant]
     Active Substance: OMEPRAZOLE MAGNESIUM
  6. LACTULOSE. [Concomitant]
     Active Substance: LACTULOSE
  7. COLACE [Concomitant]
     Active Substance: DOCUSATE SODIUM
  8. ROXANOL [Concomitant]
     Active Substance: MORPHINE SULFATE
  9. ATIVAN [Concomitant]
     Active Substance: LORAZEPAM
  10. TAXOL [Concomitant]
     Active Substance: PACLITAXEL
     Dosage: UNK, UNKNOWN
     Route: 065

REACTIONS (1)
  - Cerebrovascular accident [Fatal]

NARRATIVE: CASE EVENT DATE: 20150118
